FAERS Safety Report 15335883 (Version 2)
Quarter: 2018Q3

REPORT INFORMATION
  Report Type: Spontaneous
  Country: AR (occurrence: AR)
  Receive Date: 20180830
  Receipt Date: 20180904
  Transmission Date: 20181010
  Serious: Yes (Hospitalization)
  Sender: FDA-Public Use
  Company Number: AR-PFIZER INC-2018345961

PATIENT
  Age: 57 Year
  Sex: Female

DRUGS (1)
  1. IBRANCE [Suspect]
     Active Substance: PALBOCICLIB
     Indication: BREAST CANCER METASTATIC
     Dosage: 125 MG,DAILY, (3X1 SCHEME)
     Dates: start: 20180406

REACTIONS (2)
  - Malaise [Unknown]
  - Haematemesis [Unknown]

NARRATIVE: CASE EVENT DATE: 201807
